FAERS Safety Report 6547760-1 (Version None)
Quarter: 2010Q1

REPORT INFORMATION
  Report Type: 
  Country: None (occurrence: None)
  Receive Date: 20100124
  Receipt Date: 20091005
  Transmission Date: 20100710
  Serious: No
  Sender: FDA-Public Use
  Company Number: US-ALEXION-A200900794

PATIENT

DRUGS (7)
  1. SOLIRIS [Suspect]
     Indication: PAROXYSMAL NOCTURNAL HAEMOGLOBINURIA
     Dosage: 600 MG, Q WEEK
     Route: 042
     Dates: start: 20080819, end: 20080909
  2. SOLIRIS [Suspect]
     Dosage: 900 MG, Q 2 WEEKS
     Dates: start: 20080916, end: 20090101
  3. SOLIRIS [Suspect]
     Dosage: 900 MG, Q 12 DAYS
     Dates: start: 20090917
  4. ASPIRIN [Concomitant]
     Dosage: 325 MG, QD
     Route: 048
  5. FOLIC ACID [Concomitant]
     Dosage: 1 MG, QD
     Route: 048
  6. PAXIL [Concomitant]
     Dosage: UNK
     Route: 048
     Dates: end: 20090812
  7. LEXAPRO [Concomitant]
     Dosage: UNK
     Route: 048
     Dates: start: 20090812

REACTIONS (4)
  - BLOOD LACTATE DEHYDROGENASE INCREASED [None]
  - FATIGUE [None]
  - HAEMOGLOBIN DECREASED [None]
  - HOT FLUSH [None]
